FAERS Safety Report 4951671-2 (Version None)
Quarter: 2006Q1

REPORT INFORMATION
  Report Type: 
  Country: None (occurrence: None)
  Receive Date: 20060323
  Receipt Date: 20060322
  Transmission Date: 20060701
  Serious: Yes (Other)
  Sender: FDA-Public Use
  Company Number: US-GLAXOSMITHKLINE-A0598522A

PATIENT
  Age: 44 Year
  Sex: Male

DRUGS (1)
  1. AQUAFRESH EXTREME CLEAN ORIGINAL EXPERIENCE + WHITENING TOOTHPASTE [Suspect]
     Indication: DENTAL CLEANING

REACTIONS (1)
  - CHOKING [None]
